FAERS Safety Report 9458165 (Version 1)
Quarter: 2013Q3

REPORT INFORMATION
  Report Type: Spontaneous
  Country: GB (occurrence: GB)
  Receive Date: 20130814
  Receipt Date: 20130814
  Transmission Date: 20140515
  Serious: Yes (Other)
  Sender: FDA-Public Use
  Company Number: GB-ROCHE-1128866

PATIENT
  Age: 51 Year
  Sex: Female

DRUGS (3)
  1. RIBAVIRIN [Suspect]
     Indication: HEPATITIS C
     Route: 048
     Dates: start: 20120721
  2. INTERFERON ALFA-2A [Suspect]
     Indication: HEPATITIS C
     Route: 058
     Dates: start: 20120721
  3. TELAPREVIR [Suspect]
     Indication: HEPATITIS C
     Route: 048
     Dates: start: 20120721

REACTIONS (22)
  - Dry mouth [Not Recovered/Not Resolved]
  - Thirst [Not Recovered/Not Resolved]
  - Dyspepsia [Not Recovered/Not Resolved]
  - Diarrhoea [Unknown]
  - Rectal haemorrhage [Not Recovered/Not Resolved]
  - Gastrooesophageal reflux disease [Not Recovered/Not Resolved]
  - Nausea [Not Recovered/Not Resolved]
  - Vomiting [Not Recovered/Not Resolved]
  - Rash generalised [Not Recovered/Not Resolved]
  - Diarrhoea [Not Recovered/Not Resolved]
  - Dry skin [Not Recovered/Not Resolved]
  - Abdominal pain upper [Not Recovered/Not Resolved]
  - Swelling face [Unknown]
  - Fatigue [Unknown]
  - Pruritus [Unknown]
  - Local swelling [Unknown]
  - Hallucination, olfactory [Unknown]
  - Disturbance in attention [Unknown]
  - Skin papilloma [Unknown]
  - Amnesia [Unknown]
  - Influenza like illness [Unknown]
  - Neuropathy peripheral [Unknown]
